FAERS Safety Report 5364943-7 (Version None)
Quarter: 2007Q2

REPORT INFORMATION
  Report Type: 
  Country: None (occurrence: None)
  Receive Date: 20070621
  Receipt Date: 20070618
  Transmission Date: 20071010
  Serious: Yes (Hospitalization)
  Sender: FDA-Public Use
  Company Number: JP-BAYER-200710436BYL

PATIENT
  Age: 77 Year
  Sex: Male

DRUGS (11)
  1. ASPIRIN [Suspect]
     Dosage: TOTAL DAILY DOSE: 100 MG  UNIT DOSE: 100 MG
     Route: 048
     Dates: end: 20070611
  2. ZANTAC [Suspect]
     Dosage: TOTAL DAILY DOSE: 150 MG  UNIT DOSE: 150 MG
     Route: 048
     Dates: end: 20070611
  3. LIPITOR [Suspect]
     Dosage: TOTAL DAILY DOSE: 10 MG  UNIT DOSE: 10 MG
     Route: 048
     Dates: end: 20070611
  4. TENORMIN [Suspect]
     Dosage: TOTAL DAILY DOSE: 50 MG  UNIT DOSE: 50 MG
     Route: 048
     Dates: end: 20070611
  5. PLETAL [Suspect]
     Route: 048
     Dates: end: 20070611
  6. BEPRICOR [Suspect]
     Route: 048
     Dates: end: 20070611
  7. SIGMART [Suspect]
     Route: 048
     Dates: end: 20070611
  8. LENDORMIN [Suspect]
     Indication: INSOMNIA
     Route: 048
     Dates: end: 20070611
  9. WARFARIN POTASSIUM [Suspect]
     Route: 048
     Dates: end: 20070611
  10. LASIX [Concomitant]
     Route: 048
  11. MUCOSOLVAN [Concomitant]
     Route: 048

REACTIONS (1)
  - NEUTROPENIA [None]
